FAERS Safety Report 5622370-9 (Version None)
Quarter: 2008Q1

REPORT INFORMATION
  Report Type: 
  Country: None (occurrence: None)
  Receive Date: 20080114
  Receipt Date: 20070621
  Transmission Date: 20080703
  Serious: Yes (Other)
  Sender: FDA-Public Use
  Company Number: A03200704265

PATIENT
  Age: 78 Year
  Sex: Male
  Weight: 89.79 kg

DRUGS (5)
  1. PLAVIX [Suspect]
     Indication: POOR PERIPHERAL CIRCULATION
     Dosage: 75 MG QD, ORAL
     Route: 048
     Dates: start: 20050101, end: 20061201
  2. DONEPEZIL HCL [Concomitant]
  3. ACETYLSALICYLIC ACID SRT [Concomitant]
  4. ANTIHYPERTENSIVE [Concomitant]
  5. ANTIGOUT PREPARATION [Concomitant]

REACTIONS (7)
  - COLONIC POLYP [None]
  - DIARRHOEA [None]
  - FAECES DISCOLOURED [None]
  - FAECES HARD [None]
  - FATIGUE [None]
  - FULL BLOOD COUNT DECREASED [None]
  - GASTROINTESTINAL HAEMORRHAGE [None]
